FAERS Safety Report 4506624-5 (Version None)
Quarter: 2004Q4

REPORT INFORMATION
  Report Type: 
  Country: None (occurrence: None)
  Receive Date: 20041122
  Receipt Date: 20030605
  Transmission Date: 20050328
  Serious: Yes (Hospitalization, Disabling, Other)
  Sender: FDA-Public Use
  Company Number: US-MERCK-0306USA00694

PATIENT
  Age: 74 Year
  Sex: Female

DRUGS (5)
  1. VIOXX [Suspect]
     Route: 048
  2. QUININE [Concomitant]
     Route: 065
  3. BETOPTIC [Concomitant]
     Route: 047
  4. CALCIUM (UNSPECIFIED) [Concomitant]
     Route: 065
  5. VITAMINS (UNSPECIFIED) [Concomitant]
     Route: 065

REACTIONS (12)
  - ACCELERATED HYPERTENSION [None]
  - ADVERSE EVENT [None]
  - ANEURYSM [None]
  - ANGINA PECTORIS [None]
  - CARDIOMEGALY [None]
  - CONVULSION [None]
  - HAEMORRHAGIC STROKE [None]
  - ILEUS [None]
  - POSTOPERATIVE ILEUS [None]
  - SMALL INTESTINAL OBSTRUCTION [None]
  - VIITH NERVE PARALYSIS [None]
  - WHITE BLOOD CELL COUNT INCREASED [None]
